FAERS Safety Report 7046904-5 (Version None)
Quarter: 2010Q4

REPORT INFORMATION
  Report Type: 
  Country: None (occurrence: None)
  Receive Date: 20101015
  Receipt Date: 20101006
  Transmission Date: 20110411
  Serious: Yes (Hospitalization)
  Sender: FDA-Public Use
  Company Number: CA-JNJFOC-20100308446

PATIENT
  Sex: Male

DRUGS (4)
  1. REMICADE [Suspect]
     Indication: PRODUCT USED FOR UNKNOWN INDICATION
     Route: 042
  2. CLOXACILLIN [Concomitant]
  3. MORPHINE [Concomitant]
     Indication: ANALGESIC THERAPY
  4. OXYCODONE HCL [Concomitant]

REACTIONS (4)
  - CELLULITIS [None]
  - HAEMARTHROSIS [None]
  - JOINT SPRAIN [None]
  - LIGAMENT INJURY [None]
